FAERS Safety Report 25967835 (Version 1)
Quarter: 2025Q4

REPORT INFORMATION
  Report Type: Report from Study
  Country: US (occurrence: US)
  Receive Date: 20251028
  Receipt Date: 20251028
  Transmission Date: 20260118
  Serious: Yes (Other)
  Sender: MIRUM PHARMACEUTICALS
  Company Number: US-MIRUM PHARMACEUTICALS INTERNATIONAL B.V.-US-MIR-25-00772

PATIENT

DRUGS (1)
  1. LIVMARLI [Suspect]
     Active Substance: MARALIXIBAT CHLORIDE
     Indication: Alagille syndrome
     Dosage: 0.09 MILLILITER, QD
     Route: 065
     Dates: start: 20250925

REACTIONS (5)
  - Haematochezia [Unknown]
  - Ocular icterus [Unknown]
  - Ocular hyperaemia [Unknown]
  - Scratch [Unknown]
  - Prescribed underdose [Unknown]

NARRATIVE: CASE EVENT DATE: 20250925
